FAERS Safety Report 5597090-X (Version None)
Quarter: 2008Q1

REPORT INFORMATION
  Report Type: 
  Country: None (occurrence: None)
  Receive Date: 20080121
  Receipt Date: 20080114
  Transmission Date: 20080703
  Serious: Yes (Death, Life-Threatening, Hospitalization, Disabling, Other)
  Sender: FDA-Public Use
  Company Number: PHFR2004GB04538

PATIENT
  Age: 84 Year
  Sex: Male
  Weight: 75 kg

DRUGS (12)
  1. GLEEVEC [Suspect]
     Indication: GASTROINTESTINAL STROMAL TUMOUR
     Dosage: 400 MG/D
     Route: 048
     Dates: start: 20041112
  2. ALLOPURINOL [Concomitant]
     Dosage: 400MG/DAY
     Route: 065
  3. GLICLAZIDE [Concomitant]
     Route: 065
  4. DOXAZOSIN [Concomitant]
     Route: 065
  5. CLOPIDOGREL [Concomitant]
     Route: 065
  6. SPIRONOLACTONE [Concomitant]
     Route: 065
  7. ATENOLOL [Concomitant]
     Route: 065
  8. LANSOPRAZOLE [Concomitant]
     Route: 065
  9. METFORMIN [Concomitant]
     Route: 065
  10. LERCANIDIPINE [Concomitant]
     Route: 065
  11. ACETAMINOPHEN [Concomitant]
  12. FERROUS SULFATE TAB [Concomitant]

REACTIONS (16)
  - ACUTE RESPIRATORY DISTRESS SYNDROME [None]
  - BLOOD CREATININE INCREASED [None]
  - BLOOD LACTATE DEHYDROGENASE INCREASED [None]
  - BLOOD UREA INCREASED [None]
  - BRONCHOPNEUMONIA [None]
  - DYSPNOEA [None]
  - HYPERKALAEMIA [None]
  - HYPERURICAEMIA [None]
  - MALAISE [None]
  - METABOLIC ACIDOSIS [None]
  - NEOPLASM PROGRESSION [None]
  - OEDEMA [None]
  - PERITONITIS [None]
  - RENAL IMPAIRMENT [None]
  - TUMOUR LYSIS SYNDROME [None]
  - URINE OUTPUT DECREASED [None]
